FAERS Safety Report 8416752-X (Version None)
Quarter: 2012Q2

REPORT INFORMATION
  Report Type: 
  Country: None (occurrence: None)
  Receive Date: 20120323
  Receipt Date: 20110223
  Transmission Date: 20120825
  Serious: Yes (Other)
  Sender: FDA-Public Use
  Company Number: 163-21880-11023055

PATIENT
  Age: 80 Year
  Sex: Male

DRUGS (7)
  1. LEVAQUIN [Concomitant]
  2. REVLIMID [Suspect]
     Indication: MULTIPLE MYELOMA
     Dosage: 25 MG, 1 IN 1 D ; 25 MG, X 21 DAYS
     Dates: start: 20101101
  3. REVLIMID [Suspect]
     Indication: MULTIPLE MYELOMA
     Dosage: 25 MG, 1 IN 1 D ; 25 MG, X 21 DAYS
     Dates: start: 20081201
  4. DEXAMETHASONE [Concomitant]
  5. PROSCAR [Concomitant]
  6. VELCADE [Concomitant]
  7. CARDURA [Concomitant]

REACTIONS (2)
  - NEUROPATHY PERIPHERAL [None]
  - THROMBOCYTOPENIA [None]
